FAERS Safety Report 7529049-7 (Version None)
Quarter: 2011Q2

REPORT INFORMATION
  Report Type: 
  Country: None (occurrence: None)
  Receive Date: 20110520
  Receipt Date: 20110414
  Transmission Date: 20111010
  Serious: No
  Sender: FDA-Public Use
  Company Number: 031355

PATIENT
  Sex: Female

DRUGS (1)
  1. LACOSAMIDE [Suspect]
     Dosage: (ORAL)
     Route: 048

REACTIONS (2)
  - SOMNOLENCE [None]
  - FATIGUE [None]
